FAERS Safety Report 4869181-X (Version None)
Quarter: 2005Q4

REPORT INFORMATION
  Report Type: 
  Country: None (occurrence: None)
  Receive Date: 20051230
  Receipt Date: 20051221
  Transmission Date: 20060501
  Serious: Yes (Hospitalization, Other)
  Sender: FDA-Public Use
  Company Number: US-ABBOTT-05P-163-0320366-00

PATIENT
  Sex: Female
  Weight: 70.37 kg

DRUGS (11)
  1. HUMIRA [Suspect]
     Indication: RHEUMATOID ARTHRITIS
     Route: 058
     Dates: start: 20040101, end: 20051206
  2. THYROID TAB [Concomitant]
     Indication: HYPOTHYROIDISM
     Route: 048
  3. FOLIC ACID [Concomitant]
     Indication: VITAMIN SUPPLEMENTATION
     Route: 048
  4. TRIAMTERENE [Concomitant]
     Indication: OEDEMA PERIPHERAL
     Dosage: UNIT DOSE: 37.5/25
     Route: 048
  5. POTASSIUM [Concomitant]
     Indication: MINERAL SUPPLEMENTATION
     Route: 048
  6. TRAMADOL HCL [Concomitant]
     Indication: PAIN
     Route: 048
     Dates: start: 20030101
  7. TEMAZEPAM [Concomitant]
     Indication: INSOMNIA
     Route: 048
  8. CALCITONIN-SALMON [Concomitant]
     Indication: OSTEOPOROSIS PROPHYLAXIS
     Dosage: ROUTE: SPRAY
     Route: 050
  9. XYAMBALTA [Concomitant]
     Indication: PAIN
     Route: 048
  10. CETIRIZINE HYDROCHLORIDE [Concomitant]
     Indication: HYPERSENSITIVITY
     Route: 048
  11. FLUTICASONE PROPIONATE [Concomitant]
     Indication: HYPERSENSITIVITY
     Dosage: NASAL SPRAY
     Route: 045

REACTIONS (5)
  - ANAEMIA [None]
  - CYSTITIS [None]
  - FALL [None]
  - LOSS OF CONSCIOUSNESS [None]
  - UPPER LIMB FRACTURE [None]
